FAERS Safety Report 18962115 (Version 1)
Quarter: 2021Q1

REPORT INFORMATION
  Report Type: Spontaneous
  Country: GB (occurrence: GB)
  Receive Date: 20210302
  Receipt Date: 20210302
  Transmission Date: 20210420
  Serious: Yes (Other)
  Sender: FDA-Public Use
  Company Number: GB-SUN PHARMACEUTICAL INDUSTRIES LTD-2021RR-283665

PATIENT
  Age: 69 Year
  Sex: Female

DRUGS (15)
  1. ANASTROZOLE. [Suspect]
     Active Substance: ANASTROZOLE
     Dosage: 1 MILLIGRAM, DAILY
     Route: 048
  2. DOCETAXEL. [Suspect]
     Active Substance: DOCETAXEL
     Dosage: NUMBER OF CYCLES: 6
     Route: 042
     Dates: start: 20151231, end: 20151231
  3. PERTUZUMAB. [Suspect]
     Active Substance: PERTUZUMAB
     Dosage: MAINTANANCE DOSE
     Route: 042
     Dates: start: 20160125, end: 20190426
  4. TRASTUZUMAB. [Suspect]
     Active Substance: TRASTUZUMAB
     Dosage: MAINTANANCE DOSE
     Route: 042
  5. TRASTUZUMAB. [Suspect]
     Active Substance: TRASTUZUMAB
     Dosage: MAINTANANCE DOSE
     Route: 042
     Dates: start: 20160125, end: 20190426
  6. ESTRIOL [Concomitant]
     Active Substance: ESTRIOL
     Indication: PRODUCT USED FOR UNKNOWN INDICATION
     Dosage: UNK
     Route: 061
  7. LORATADINE. [Concomitant]
     Active Substance: LORATADINE
     Indication: PRODUCT USED FOR UNKNOWN INDICATION
     Dosage: 10 MILLIGRAM, DAILY
     Route: 048
  8. TRASTUZUMAB. [Suspect]
     Active Substance: TRASTUZUMAB
     Dosage: 378 MILLIGRAM, 1 DOSE/3 WEEKS
     Route: 042
  9. RANITIDINE. [Concomitant]
     Active Substance: RANITIDINE
     Indication: GASTROOESOPHAGEAL REFLUX DISEASE
     Route: 048
  10. PERTUZUMAB. [Suspect]
     Active Substance: PERTUZUMAB
     Indication: BREAST CANCER METASTATIC
     Dosage: LOADING DOSE
     Route: 042
     Dates: start: 20151230, end: 20151230
  11. RAMIPRIL. [Concomitant]
     Active Substance: RAMIPRIL
     Indication: EJECTION FRACTION DECREASED
     Dosage: 5 MILLIGRAM, DAILY
     Route: 048
  12. DOCETAXEL. [Suspect]
     Active Substance: DOCETAXEL
     Indication: BREAST CANCER METASTATIC
     Dosage: NUMBER OF CYCLES: 6
     Route: 042
  13. DOCETAXEL. [Suspect]
     Active Substance: DOCETAXEL
     Dosage: NUMBER OF CYCLES: 6
     Route: 042
     Dates: start: 20160125, end: 20160401
  14. ANASTROZOLE. [Suspect]
     Active Substance: ANASTROZOLE
     Indication: BREAST CANCER METASTATIC
     Dosage: 1 MILLIGRAM, DAILY
     Route: 048
     Dates: start: 20151123, end: 20151231
  15. TRASTUZUMAB. [Suspect]
     Active Substance: TRASTUZUMAB
     Indication: BREAST CANCER METASTATIC
     Dosage: LOADING DOSE
     Route: 042
     Dates: start: 20151230, end: 20151230

REACTIONS (4)
  - Arthralgia [Unknown]
  - Neuropathy peripheral [Not Recovered/Not Resolved]
  - Atrial fibrillation [Unknown]
  - Stomatitis [Recovered/Resolved]

NARRATIVE: CASE EVENT DATE: 201604
